FAERS Safety Report 7011493-8 (Version None)
Quarter: 2010Q3

REPORT INFORMATION
  Report Type: 
  Country: None (occurrence: None)
  Receive Date: 20100923
  Receipt Date: 20090821
  Transmission Date: 20110219
  Serious: No
  Sender: FDA-Public Use
  Company Number: US-WYE-H07971409

PATIENT
  Sex: Female

DRUGS (2)
  1. PREMARIN [Suspect]
     Indication: HORMONE REPLACEMENT THERAPY
  2. ESTRACE [Suspect]
     Indication: HORMONE REPLACEMENT THERAPY

REACTIONS (3)
  - ARTHRITIS [None]
  - DEPRESSION [None]
  - MALAISE [None]
